FAERS Safety Report 10866662 (Version 2)
Quarter: 2015Q1

REPORT INFORMATION
  Report Type: Spontaneous
  Country: JP (occurrence: None)
  Receive Date: 20150220
  Receipt Date: 20150306
  Transmission Date: 20150721
  Serious: Yes (Life-Threatening)
  Sender: FDA-Public Use
  Company Number: 2015FE00089

PATIENT
  Age: 37 Year
  Sex: Female

DRUGS (14)
  1. LIPIODOL [Concomitant]
     Active Substance: ETHIODIZED OIL
  2. HMG FUJI SEIYAKU [Concomitant]
     Active Substance: MENOTROPINS
     Indication: OVULATION INDUCTION
     Route: 030
     Dates: start: 20131125, end: 20131125
  3. FLOMOX (CEFCAPENE PIVOXIL HYDROCHLORIDE) [Concomitant]
  4. DUPHASTON (DYDROGESTERONE) [Concomitant]
  5. CLOMID (CLOMIFENE CITRATE) [Concomitant]
  6. NASANYL (NAFARELIN ACETATE) [Concomitant]
  7. MODACIN (CEFTAZIDIME) [Concomitant]
     Active Substance: CEFTAZIDIME
  8. CETROTIDE [Concomitant]
     Active Substance: CETRORELIX ACETATE
     Indication: PREVENTION OF PREMATURE OVULATION
     Route: 058
     Dates: start: 20131129, end: 20131130
  9. PLANOVAR [Suspect]
     Active Substance: ETHINYL ESTRADIOL\NORGESTREL
     Indication: OVULATION INDUCTION
     Route: 048
     Dates: start: 20131020, end: 20131109
  10. MUCOSTA (REBAMIPIDE) [Concomitant]
  11. MENOPUR [Suspect]
     Active Substance: FOLLICLE STIMULATING HORMONE BETA POLYPEPTIDE\LUTROPIN ALFA
     Indication: OVULATION INDUCTION
     Route: 030
     Dates: start: 20131130, end: 20131130
  12. GESTORON (CHORIONIC GONIADOTROPHIN) INJECTION, 5000IU [Suspect]
     Active Substance: GONADOTROPHIN, CHORIONIC
     Indication: OVULATION INDUCTION
     Route: 030
     Dates: start: 20131130, end: 20131130
  13. HCG (CHORIONIC GONADOTROPHIN) [Suspect]
     Active Substance: GONADOTROPHIN, CHORIONIC
     Indication: OVULATION INDUCTION
     Route: 030
     Dates: start: 20140320, end: 20140320
  14. PREMARIN [Concomitant]
     Active Substance: ESTROGENS, CONJUGATED

REACTIONS (2)
  - Deep vein thrombosis [None]
  - Pulmonary embolism [None]

NARRATIVE: CASE EVENT DATE: 20140415
